FAERS Safety Report 7653671-0 (Version None)
Quarter: 2011Q3

REPORT INFORMATION
  Report Type: 
  Country: None (occurrence: None)
  Receive Date: 20110801
  Receipt Date: 20110801
  Transmission Date: 20111222
  Serious: Yes (Hospitalization)
  Sender: FDA-Public Use
  Company Number: None

PATIENT

DRUGS (2)
  1. LOVENOX [Suspect]
  2. COUMADIN [Suspect]

REACTIONS (3)
  - OVERDOSE [None]
  - CEREBRAL HAEMORRHAGE [None]
  - PRODUCT QUALITY ISSUE [None]
